FAERS Safety Report 8167304-0 (Version None)
Quarter: 2012Q1

REPORT INFORMATION
  Report Type: 
  Country: None (occurrence: None)
  Receive Date: 20120227
  Receipt Date: 20120221
  Transmission Date: 20120608
  Serious: Yes (Other)
  Sender: FDA-Public Use
  Company Number: US-PFIZER INC-2012047829

PATIENT
  Sex: Male

DRUGS (1)
  1. LIPITOR [Suspect]
     Dosage: 40 MG, ONE DAILY
     Dates: start: 20040101

REACTIONS (2)
  - SYSTEMIC LUPUS ERYTHEMATOSUS [None]
  - BLOOD CHOLESTEROL DECREASED [None]
